FAERS Safety Report 8186973-2 (Version None)
Quarter: 2012Q1

REPORT INFORMATION
  Report Type: 
  Country: None (occurrence: None)
  Receive Date: 20120302
  Receipt Date: 20120220
  Transmission Date: 20120608
  Serious: Yes (Other)
  Sender: FDA-Public Use
  Company Number: 2012AP000342

PATIENT
  Age: 62 Year
  Sex: Female

DRUGS (3)
  1. MELOXICAM [Concomitant]
  2. LISINOPRIL [Concomitant]
  3. CALCITONIN SALMON [Suspect]
     Indication: PRODUCT USED FOR UNKNOWN INDICATION
     Dosage: 1 SPR;1X;NAS
     Route: 045
     Dates: start: 20120112

REACTIONS (12)
  - MUSCULAR WEAKNESS [None]
  - MUSCLE CONTRACTURE [None]
  - ABDOMINAL PAIN UPPER [None]
  - INSOMNIA [None]
  - MYALGIA [None]
  - PYREXIA [None]
  - NAUSEA [None]
  - BRUXISM [None]
  - RENAL PAIN [None]
  - ABDOMINAL DISCOMFORT [None]
  - POLLAKIURIA [None]
  - PAIN [None]
